FAERS Safety Report 11236980 (Version 1)
Quarter: 2015Q3

REPORT INFORMATION
  Report Type: Spontaneous
  Country: GB (occurrence: GB)
  Receive Date: 20150703
  Receipt Date: 20150703
  Transmission Date: 20151125
  Serious: Yes (Hospitalization)
  Sender: FDA-Public Use
  Company Number: GB-009507513-1506GBR014903

PATIENT
  Age: 35 Year
  Sex: Female

DRUGS (3)
  1. CETRORELIX [Suspect]
     Active Substance: CETRORELIX
     Indication: OVULATION INDUCTION
  2. FOLLITROPIN BETA [Suspect]
     Active Substance: FOLLITROPIN
     Indication: OVULATION INDUCTION
     Dosage: UNKNOWN
  3. METFORMIN [Concomitant]
     Active Substance: METFORMIN HYDROCHLORIDE
     Indication: IN VITRO FERTILISATION

REACTIONS (1)
  - Pleural effusion [Recovered/Resolved]
